FAERS Safety Report 13757857 (Version 1)
Quarter: 2017Q3

REPORT INFORMATION
  Report Type: Spontaneous
  Country: US (occurrence: US)
  Receive Date: 20170717
  Receipt Date: 20170717
  Transmission Date: 20171127
  Serious: No
  Sender: FDA-Public Use
  Company Number: US-SHIRE-US201714208

PATIENT
  Sex: Female

DRUGS (1)
  1. XIIDRA [Suspect]
     Active Substance: LIFITEGRAST
     Indication: DRY EYE
     Dosage: ONE GTT OU BID/OPHTHALMIC
     Route: 065
     Dates: start: 20170626

REACTIONS (5)
  - Impaired driving ability [Unknown]
  - Dysgeusia [Recovered/Resolved]
  - Visual acuity reduced [Unknown]
  - Instillation site reaction [Unknown]
  - Instillation site pain [Recovered/Resolved]
